FAERS Safety Report 25932976 (Version 1)
Quarter: 2025Q4

REPORT INFORMATION
  Report Type: Spontaneous
  Country: EU (occurrence: EU)
  Receive Date: 20251017
  Receipt Date: 20251017
  Transmission Date: 20260118
  Serious: Yes (Other)
  Sender: ACCORD
  Company Number: None

PATIENT
  Sex: Male
  Weight: 2.42 kg

DRUGS (3)
  1. SERTRALINE [Suspect]
     Active Substance: SERTRALINE HYDROCHLORIDE
     Indication: Depression
     Dosage: STRENGTH: 50 MG
     Dates: start: 202401, end: 202410
  2. DUPILUMAB [Concomitant]
     Active Substance: DUPILUMAB
     Indication: Chronic sinusitis
     Dosage: UNTIL GW 12, STRENGTH: 300 MG
  3. MOMETASONE FUROATE [Concomitant]
     Active Substance: MOMETASONE FUROATE
     Indication: Chronic sinusitis
     Dosage: UNTIL GW 7
     Dates: start: 202401, end: 202403

REACTIONS (2)
  - Small for dates baby [Recovered/Resolved]
  - Foetal exposure during pregnancy [Unknown]

NARRATIVE: CASE EVENT DATE: 20241001
